FAERS Safety Report 19809619 (Version 2)
Quarter: 2022Q1

REPORT INFORMATION
  Report Type: Spontaneous
  Country: US (occurrence: US)
  Receive Date: 20210909
  Receipt Date: 20220126
  Transmission Date: 20220423
  Serious: Yes (Hospitalization)
  Sender: FDA-Public Use
  Company Number: US-PFIZER INC-202101127169

PATIENT
  Age: 42 Year
  Sex: Female
  Weight: 76.19 kg

DRUGS (7)
  1. IBRANCE [Suspect]
     Active Substance: PALBOCICLIB
     Indication: Breast cancer female
     Dosage: 100 MG, CYCLIC, DAILY X 21 DAYS
     Route: 048
     Dates: start: 202108
  2. IBRANCE [Suspect]
     Active Substance: PALBOCICLIB
     Dosage: 100 MG, CYCLIC (21 DAYS ON 7 DAYS OFF)
     Route: 048
     Dates: start: 20210726
  3. BIOTIN [Concomitant]
     Active Substance: BIOTIN
     Dosage: 5 MG
  4. CITALOPRAM [Concomitant]
     Active Substance: CITALOPRAM HYDROBROMIDE
     Dosage: 40 MG
  5. GABAPENTIN [Concomitant]
     Active Substance: GABAPENTIN
     Dosage: 100 MG
  6. PRILOSEC [Concomitant]
     Active Substance: OMEPRAZOLE MAGNESIUM
     Dosage: 20 MG
  7. ANASTROZOLE GA [Concomitant]
     Dosage: 1 MG

REACTIONS (4)
  - White blood cell count decreased [Recovering/Resolving]
  - Rash [Recovered/Resolved]
  - Herpes zoster [Unknown]
  - Neoplasm progression [Not Recovered/Not Resolved]
